FAERS Safety Report 15894264 (Version 2)
Quarter: 2019Q1

REPORT INFORMATION
  Report Type: Spontaneous
  Country: JP (occurrence: JP)
  Receive Date: 20190131
  Receipt Date: 20190204
  Transmission Date: 20190417
  Serious: Yes (Other)
  Sender: FDA-Public Use
  Company Number: JP-SA-2019SA025215

PATIENT
  Age: 86 Year
  Sex: Female

DRUGS (1)
  1. XYZAL [Suspect]
     Active Substance: LEVOCETIRIZINE DIHYDROCHLORIDE
     Indication: RHINORRHOEA
     Dosage: 5 MG, QD (BEFORE BEDTIME)
     Route: 048

REACTIONS (7)
  - Pneumonia aspiration [Recovered/Resolved]
  - Vision blurred [Unknown]
  - Speech disorder [Recovered/Resolved]
  - Dementia [Unknown]
  - Dysphagia [Not Recovered/Not Resolved]
  - Salivary hypersecretion [Unknown]
  - Feeding disorder [Unknown]
